FAERS Safety Report 15724202 (Version 3)
Quarter: 2021Q3

REPORT INFORMATION
  Report Type: Spontaneous
  Country: US (occurrence: US)
  Receive Date: 20181214
  Receipt Date: 20210921
  Transmission Date: 20211014
  Serious: Yes (Hospitalization)
  Sender: FDA-Public Use
  Company Number: US-PFIZER INC-2017401179

PATIENT
  Age: 58 Year
  Sex: Female

DRUGS (4)
  1. SOMAVERT [Suspect]
     Active Substance: PEGVISOMANT
     Dosage: 30 MG, DAILY
     Route: 058
     Dates: start: 20090804
  2. SOMAVERT [Suspect]
     Active Substance: PEGVISOMANT
     Dosage: 15 MG, DAILY
     Route: 058
     Dates: start: 200410, end: 200908
  3. SOMAVERT [Suspect]
     Active Substance: PEGVISOMANT
     Indication: ACROMEGALY
     Dosage: 40 MG, UNK
     Dates: start: 2004
  4. SANDOSTATIN [Concomitant]
     Active Substance: OCTREOTIDE ACETATE
     Indication: BLOOD GROWTH HORMONE INCREASED
     Dosage: UNK UNK, WEEKLY

REACTIONS (5)
  - Arthralgia [Unknown]
  - Insulin-like growth factor abnormal [Unknown]
  - Blood growth hormone increased [Unknown]
  - Intentional dose omission [Unknown]
  - Bone pain [Unknown]
